FAERS Safety Report 20556811 (Version 1)
Quarter: 2022Q1

REPORT INFORMATION
  Report Type: Spontaneous
  Country: CA (occurrence: CA)
  Receive Date: 20220307
  Receipt Date: 20220307
  Transmission Date: 20220423
  Serious: Yes (Hospitalization, Other)
  Sender: FDA-Public Use
  Company Number: None

PATIENT
  Age: 22 Year
  Sex: Female

DRUGS (7)
  1. MYCOPHENOLIC ACID [Interacting]
     Active Substance: MYCOPHENOLIC ACID
     Indication: Immunosuppression
  2. TACROLIMUS [Interacting]
     Active Substance: TACROLIMUS
     Indication: Renal transplant
     Dosage: 1 EVERY 1 DAYS
     Route: 048
  3. AZATHIOPRINE [Interacting]
     Active Substance: AZATHIOPRINE
     Indication: Immunosuppression
  4. ERYTHROMYCIN [Interacting]
     Active Substance: ERYTHROMYCIN
     Indication: Premature labour
  5. PREDNISONE [Interacting]
     Active Substance: PREDNISONE
     Indication: Immunosuppression
  6. AZATHIOPRINE [Concomitant]
     Active Substance: AZATHIOPRINE
     Indication: Renal transplant
  7. PREDNISONE [Concomitant]
     Active Substance: PREDNISONE
     Indication: Renal transplant

REACTIONS (9)
  - Acute kidney injury [Recovered/Resolved]
  - Immunosuppressant drug level decreased [Recovered/Resolved]
  - Immunosuppressant drug level increased [Recovered/Resolved]
  - Pre-eclampsia [Recovered/Resolved]
  - Thrombotic microangiopathy [Recovered/Resolved]
  - Drug interaction [Unknown]
  - Maternal exposure during pregnancy [Unknown]
  - Premature delivery [Unknown]
  - Microangiopathic haemolytic anaemia [Unknown]
